FAERS Safety Report 24250264 (Version 1)
Quarter: 2024Q3

REPORT INFORMATION
  Report Type: Spontaneous
  Country: US (occurrence: US)
  Receive Date: 20240826
  Receipt Date: 20240826
  Transmission Date: 20241016
  Serious: Yes (Hospitalization)
  Sender: TEVA
  Company Number: US-TEVA-VS-3234297

PATIENT
  Sex: Female

DRUGS (1)
  1. FENTANYL [Suspect]
     Active Substance: FENTANYL\FENTANYL CITRATE
     Indication: Unevaluable event
     Route: 065

REACTIONS (4)
  - Hospitalisation [Unknown]
  - Product availability issue [Unknown]
  - Single functional kidney [Unknown]
  - Malaise [Unknown]

NARRATIVE: CASE EVENT DATE: 20240816
